FAERS Safety Report 5546469-0 (Version None)
Quarter: 2007Q4

REPORT INFORMATION
  Report Type: 
  Country: None (occurrence: None)
  Receive Date: 20071206
  Receipt Date: 20071206
  Transmission Date: 20080405
  Serious: Yes (Other)
  Sender: FDA-Public Use
  Company Number: None

PATIENT
  Age: 81 Year
  Sex: Male
  Weight: 90.7194 kg

DRUGS (1)
  1. SIMVASTATIN [Suspect]
     Indication: BLOOD CHOLESTEROL INCREASED
     Dosage: 1  DAILY AT BEDTIME PO
     Route: 048
     Dates: start: 20071201, end: 20071204

REACTIONS (4)
  - ASTHENIA [None]
  - DYSPHONIA [None]
  - INFLUENZA LIKE ILLNESS [None]
  - URINE OUTPUT INCREASED [None]
